FAERS Safety Report 16114462 (Version 1)
Quarter: 2019Q1

REPORT INFORMATION
  Report Type: Spontaneous
  Country: SE (occurrence: SE)
  Receive Date: 20190325
  Receipt Date: 20190325
  Transmission Date: 20190418
  Serious: Yes (Life-Threatening, Hospitalization, Disabling)
  Sender: FDA-Public Use
  Company Number: SE-BAYER-2019-052043

PATIENT
  Age: 74 Year
  Sex: Female
  Weight: 45 kg

DRUGS (23)
  1. ISOSORBIDE MONONITRATE. [Interacting]
     Active Substance: ISOSORBIDE MONONITRATE
     Indication: VASODILATATION
  2. HALDOL [Interacting]
     Active Substance: HALOPERIDOL
  3. DIAZEMULS NOVUM [Interacting]
     Active Substance: DIAZEPAM
     Indication: ANXIETY
  4. HEMINEVRIN [CLOMETHIAZOLE] [Interacting]
     Active Substance: CLOMETHIAZOLE
     Indication: ANXIETY
  5. METOPROLOL. [Interacting]
     Active Substance: METOPROLOL
     Indication: HYPERTENSION
  6. ASPIRIN. [Suspect]
     Active Substance: ASPIRIN
  7. DIMETICONE [Interacting]
     Active Substance: DIMETHICONE
     Indication: FLATULENCE
  8. NIFEREX (ASCORBIC ACID\CYANOCOBALAMIN\FERROUS ASPARTO GLYCINATE\FOLIC ACID\INTRINSIC FACTOR\IRON DEXTRAN\LEVOMEFOLIC ACID\SUCCINIC ACID\ZINC) [Interacting]
     Active Substance: ASCORBIC ACID\CYANOCOBALAMIN\FERROUS ASPARTO GLYCINATE\FOLIC ACID\INTRINSIC FACTOR\IRON DEXTRAN\LEVOMEFOLIC ACID\SUCCINIC ACID\ZINC
     Indication: MINERAL SUPPLEMENTATION
  9. TRAMADOL. [Interacting]
     Active Substance: TRAMADOL
     Indication: PAIN
  10. HEMINEVRIN [CLOMETHIAZOLE EDISILATE] [Suspect]
     Active Substance: CLOMETHIAZOLE EDISYLATE
  11. OXASCAND [Interacting]
     Active Substance: OXAZEPAM
  12. TROMBYL [Interacting]
     Active Substance: ASPIRIN
     Indication: ANTICOAGULANT THERAPY
  13. HIRUDOID [Interacting]
     Active Substance: GLYCOSAMINOGLYCANS
     Indication: VARICOSE VEIN
  14. GLYCERYL TRINITRATE [Interacting]
     Active Substance: NITROGLYCERIN
     Indication: VASODILATATION
  15. NATRIUMKLORID [Interacting]
     Active Substance: SODIUM CHLORIDE
  16. ESOMEPRAZOLE. [Interacting]
     Active Substance: ESOMEPRAZOLE MAGNESIUM
  17. LEVAXIN [Interacting]
     Active Substance: LEVOTHYROXINE SODIUM
     Indication: HYPOTHYROIDISM
  18. PRAMIPEXOLE. [Interacting]
     Active Substance: PRAMIPEXOLE
     Indication: MUSCLE SPASMS
  19. ALVEDON [Interacting]
     Active Substance: ACETAMINOPHEN
     Indication: PAIN
  20. ACETYLCYSTEINE. [Interacting]
     Active Substance: ACETYLCYSTEINE
     Indication: INCREASED VISCOSITY OF UPPER RESPIRATORY SECRETION
  21. ATORVASTATIN [Interacting]
     Active Substance: ATORVASTATIN
  22. HEMINEVRIN [CLOMETHIAZOLE] [Interacting]
     Active Substance: CLOMETHIAZOLE
     Indication: SLEEP DISORDER
  23. HEMINEVRIN [CLOMETHIAZOLE] [Interacting]
     Active Substance: CLOMETHIAZOLE
     Indication: CONFUSIONAL STATE

REACTIONS (6)
  - Toxicity to various agents [Unknown]
  - Sedation [Unknown]
  - Muscle atrophy [Unknown]
  - Drug interaction [Unknown]
  - Fatigue [Unknown]
  - Chronic fatigue syndrome [Unknown]

NARRATIVE: CASE EVENT DATE: 2013
